FAERS Safety Report 4490039-2 (Version None)
Quarter: 2004Q4

REPORT INFORMATION
  Report Type: 
  Country: None (occurrence: None)
  Receive Date: 20041027
  Receipt Date: 20041022
  Transmission Date: 20050328
  Serious: Yes (Hospitalization)
  Sender: FDA-Public Use
  Company Number: USA-2004-0017170

PATIENT
  Age: 45 Year
  Sex: Female

DRUGS (1)
  1. SPECTRACEF [Suspect]

REACTIONS (2)
  - CATHETER RELATED INFECTION [None]
  - STAPHYLOCOCCAL INFECTION [None]
